FAERS Safety Report 9385648 (Version 3)
Quarter: 2013Q3

REPORT INFORMATION
  Report Type: Spontaneous
  Country: JP (occurrence: JP)
  Receive Date: 20130705
  Receipt Date: 20130827
  Transmission Date: 20140515
  Serious: Yes (Other)
  Sender: FDA-Public Use
  Company Number: JP-GLAXOSMITHKLINE-B0904358A

PATIENT
  Sex: Female

DRUGS (1)
  1. REQUIP [Suspect]
     Indication: PARKINSON^S DISEASE
     Dosage: 1MG TWICE PER DAY
     Route: 048
     Dates: start: 20100922

REACTIONS (2)
  - Sudden onset of sleep [Recovered/Resolved]
  - Road traffic accident [Unknown]
